FAERS Safety Report 22124206 (Version 1)
Quarter: 2023Q1

REPORT INFORMATION
  Report Type: Spontaneous
  Country: IT (occurrence: IT)
  Receive Date: 20230322
  Receipt Date: 20230322
  Transmission Date: 20230418
  Serious: Yes (Death)
  Sender: FDA-Public Use
  Company Number: IT-BEH-2023156586

PATIENT
  Age: 90 Year
  Sex: Female

DRUGS (4)
  1. HUMAN IMMUNOGLOBULIN G [Suspect]
     Active Substance: HUMAN IMMUNOGLOBULIN G
     Indication: Guillain-Barre syndrome
     Dosage: 0.4 MILLIGRAM/KILOGRAM, QD
     Route: 042
  2. AMLODIPINE [Concomitant]
     Active Substance: AMLODIPINE BESYLATE
     Indication: Hypertension
     Route: 065
  3. CLONIDINE [Concomitant]
     Active Substance: CLONIDINE
     Indication: Hypertension
     Route: 062
  4. METRONIDAZOLE [Concomitant]
     Active Substance: METRONIDAZOLE
     Route: 065

REACTIONS (2)
  - Therapeutic product effect incomplete [Fatal]
  - Hypertension [Fatal]
